FAERS Safety Report 4430112-8 (Version None)
Quarter: 2004Q3

REPORT INFORMATION
  Report Type: 
  Country: None (occurrence: None)
  Receive Date: 20040820
  Receipt Date: 20040813
  Transmission Date: 20050211
  Serious: Yes (Hospitalization)
  Sender: FDA-Public Use
  Company Number: FR-ROCHE-377554

PATIENT
  Age: 76 Year
  Sex: Female
  Weight: 48 kg

DRUGS (5)
  1. APRANAX [Suspect]
     Indication: DRUG USE FOR UNKNOWN INDICATION
     Route: 048
     Dates: start: 20040525, end: 20040525
  2. PULMICORT [Concomitant]
     Indication: CHRONIC OBSTRUCTIVE AIRWAYS DISEASE
     Dosage: STRENGTH: 200 (NO UNITS PROVIDED).
     Route: 055
  3. DILTIAZEM HCL [Concomitant]
     Indication: ANGINA PECTORIS
     Route: 048
  4. LASIX [Concomitant]
     Indication: ESSENTIAL HYPERTENSION
     Route: 048
  5. PLAVIX [Concomitant]
     Indication: ANGINA PECTORIS
     Route: 048

REACTIONS (1)
  - ASTHMA [None]
